FAERS Safety Report 8574266-0 (Version None)
Quarter: 2012Q3

REPORT INFORMATION
  Report Type: 
  Country: None (occurrence: None)
  Receive Date: 20120806
  Receipt Date: 20120727
  Transmission Date: 20120928
  Serious: Yes (Hospitalization)
  Sender: FDA-Public Use
  Company Number: US-ASTRAZENECA-2011SE45108

PATIENT
  Age: 47 Year
  Sex: Female

DRUGS (20)
  1. SEROQUEL [Suspect]
     Indication: INSOMNIA
     Route: 048
  2. SEROQUEL [Suspect]
     Route: 048
  3. SEROQUEL [Suspect]
     Route: 048
  4. SEROQUEL [Suspect]
     Route: 048
  5. SEROQUEL [Suspect]
     Indication: ANXIETY
     Route: 048
  6. SEROQUEL [Suspect]
     Dosage: DOUBLED UP ON PILLS
     Route: 048
  7. SEROQUEL [Suspect]
     Dosage: DOUBLED UP ON PILLS
     Route: 048
  8. SEROQUEL [Suspect]
     Dosage: DOUBLED UP ON PILLS
     Route: 048
  9. SEROQUEL [Suspect]
     Dosage: SOMETIMES TAKES TWO PER DAY
     Route: 048
  10. SEROQUEL [Suspect]
     Route: 048
  11. SEROQUEL [Suspect]
     Route: 048
  12. SEROQUEL [Suspect]
     Indication: DEPRESSION
     Route: 048
  13. SEROQUEL [Suspect]
     Indication: SLEEP APNOEA SYNDROME
     Route: 048
  14. SEROQUEL [Suspect]
     Dosage: SOMETIMES TAKES TWO PER DAY
     Route: 048
  15. SEROQUEL [Suspect]
     Dosage: DOUBLED UP ON PILLS
     Route: 048
  16. SEROQUEL [Suspect]
     Dosage: SOMETIMES TAKES TWO PER DAY
     Route: 048
  17. SEROQUEL [Suspect]
     Route: 048
  18. SEROQUEL [Suspect]
     Route: 048
  19. SEROQUEL [Suspect]
     Dosage: SOMETIMES TAKES TWO PER DAY
     Route: 048
  20. SEROQUEL [Suspect]
     Route: 048

REACTIONS (10)
  - OFF LABEL USE [None]
  - MALAISE [None]
  - PANCREATITIS [None]
  - INSOMNIA [None]
  - PULMONARY OEDEMA [None]
  - PNEUMONIA [None]
  - HEPATIC LESION [None]
  - ULCER [None]
  - INTENTIONAL DRUG MISUSE [None]
  - GASTRIC ULCER [None]
